FAERS Safety Report 10648130 (Version 1)
Quarter: 2014Q4

REPORT INFORMATION
  Report Type: Spontaneous
  Country: US (occurrence: None)
  Receive Date: 20141211
  Receipt Date: 20141211
  Transmission Date: 20150529
  Serious: Yes (Other)
  Sender: FDA-Public Use
  Company Number: None

PATIENT
  Age: 26 Year
  Sex: Male
  Weight: 73.03 kg

DRUGS (1)
  1. AMPHETAMINE DEXTROAMPHETAMINE XR [Suspect]
     Active Substance: AMPHETAMINE SULFATE\DEXTROAMPHETAMINE
     Indication: ATTENTION DEFICIT/HYPERACTIVITY DISORDER
     Route: 048
     Dates: start: 20141103

REACTIONS (2)
  - Headache [None]
  - Abdominal pain [None]

NARRATIVE: CASE EVENT DATE: 20141103
